FAERS Safety Report 11733502 (Version 6)
Quarter: 2017Q3

REPORT INFORMATION
  Report Type: Spontaneous
  Country: US (occurrence: US)
  Receive Date: 20151113
  Receipt Date: 20170920
  Transmission Date: 20171127
  Serious: No
  Sender: FDA-Public Use
  Company Number: PHEH2015US023509

PATIENT
  Sex: Female

DRUGS (7)
  1. ONDANSETRON HYDROCHLORIDE. [Suspect]
     Active Substance: ONDANSETRON HYDROCHLORIDE
     Indication: PRODUCT USED FOR UNKNOWN INDICATION
     Route: 048
  2. ONDANSETRON AUROBINDO [Suspect]
     Active Substance: ONDANSETRON HYDROCHLORIDE
     Indication: VOMITING IN PREGNANCY
     Dosage: 4 MG, BID
     Route: 048
     Dates: start: 20141028, end: 20141101
  3. ZOFRAN [Suspect]
     Active Substance: ONDANSETRON HYDROCHLORIDE
     Indication: VOMITING IN PREGNANCY
     Route: 048
  4. ONDANSETRON DR REDDY [Suspect]
     Active Substance: ONDANSETRON
     Indication: VOMITING IN PREGNANCY
     Dosage: 8 MG, BID
     Route: 065
     Dates: start: 20141031, end: 20141105
  5. ONDANSETRON DR REDDY [Suspect]
     Active Substance: ONDANSETRON
     Dosage: 8 MG, 1 TO 2 TIMES A DAY
     Route: 065
     Dates: start: 20141110, end: 20141120
  6. ONDANSETRON DR REDDY [Suspect]
     Active Substance: ONDANSETRON
     Dosage: 8 MG, 1 TO 2 TIMES A DAY
     Route: 065
     Dates: start: 20141211, end: 20141216
  7. ONDANSETRON DR REDDY [Suspect]
     Active Substance: ONDANSETRON
     Dosage: 8 MG, 1 TO 2 TIMES A DAY
     Route: 065
     Dates: start: 20141129, end: 20141204

REACTIONS (6)
  - Anxiety [Unknown]
  - Emotional distress [Unknown]
  - Urinary tract infection [Unknown]
  - Product use in unapproved indication [Unknown]
  - Maternal exposure during pregnancy [Unknown]
  - Pain [Unknown]
